FAERS Safety Report 7061779-6 (Version None)
Quarter: 2010Q4

REPORT INFORMATION
  Report Type: 
  Country: None (occurrence: None)
  Receive Date: 20101026
  Receipt Date: 20101019
  Transmission Date: 20110411
  Serious: Yes (Death, Other)
  Sender: FDA-Public Use
  Company Number: US-GENZYME-THYM-1001726

PATIENT
  Sex: Female
  Weight: 70 kg

DRUGS (6)
  1. THYMOGLOBULIN [Suspect]
     Indication: BONE MARROW CONDITIONING REGIMEN
     Dosage: 1.5 MG/KG, QD
     Route: 042
     Dates: start: 20040512, end: 20040512
  2. THYMOGLOBULIN [Suspect]
     Dosage: 1.5 MG/KG, QD
     Route: 042
     Dates: start: 20040514, end: 20040514
  3. THYMOGLOBULIN [Suspect]
     Dosage: 1.5 MG/KG, QD
     Route: 042
     Dates: start: 20040516, end: 20040516
  4. THYMOGLOBULIN [Suspect]
     Dosage: 1.5 MG/KG, QD
     Route: 042
     Dates: start: 20040518, end: 20040518
  5. FLUDARABINE [Concomitant]
     Indication: BONE MARROW CONDITIONING REGIMEN
     Dosage: 30 MG/M2, QD
  6. MELPHALAN HYDROCHLORIDE [Concomitant]
     Indication: BONE MARROW CONDITIONING REGIMEN
     Dosage: 100 MG/M2, QD

REACTIONS (2)
  - MYELODYSPLASTIC SYNDROME [None]
  - MYELOPROLIFERATIVE DISORDER [None]
